FAERS Safety Report 6414886-2 (Version None)
Quarter: 2009Q4

REPORT INFORMATION
  Report Type: 
  Country: None (occurrence: None)
  Receive Date: 20091026
  Receipt Date: 20090611
  Transmission Date: 20100525
  Serious: No
  Sender: FDA-Public Use
  Company Number: US-ABBOTT-09P-163-0579550-00

PATIENT
  Age: 38 Year
  Sex: Female

DRUGS (2)
  1. LUPRON DEPOT [Suspect]
     Indication: ENDOMETRIOSIS
     Route: 030
     Dates: start: 20090301, end: 20090601
  2. LUPRON DEPOT [Suspect]
     Indication: DYSMENORRHOEA

REACTIONS (3)
  - DRUG INEFFECTIVE [None]
  - FLUSHING [None]
  - MENSTRUAL DISORDER [None]
